FAERS Safety Report 4791256-4 (Version None)
Quarter: 2005Q4

REPORT INFORMATION
  Report Type: 
  Country: None (occurrence: None)
  Receive Date: 20051007
  Receipt Date: 20050928
  Transmission Date: 20060501
  Serious: Yes (Hospitalization)
  Sender: FDA-Public Use
  Company Number: PHNU2005DE03311

PATIENT
  Age: 80 Year
  Sex: Female
  Weight: 62 kg

DRUGS (4)
  1. EMSELEX EXTENDED RELEASE [Suspect]
     Indication: MICTURITION URGENCY
     Dosage: 7.5 MG, QD
     Route: 048
     Dates: start: 20050913
  2. ALLOPURINOL [Concomitant]
     Dosage: 1 DF, QD
     Route: 048
  3. ASPIRIN [Concomitant]
     Dosage: 1 DF, QD
     Route: 048
  4. TORSEMIDE [Concomitant]
     Dosage: 0.5 DF, QD
     Route: 048

REACTIONS (2)
  - HAEMATOMA [None]
  - PANCYTOPENIA [None]
